FAERS Safety Report 22234250 (Version 3)
Quarter: 2023Q2

REPORT INFORMATION
  Report Type: Report from Study
  Country: CA (occurrence: CA)
  Receive Date: 20230420
  Receipt Date: 20230503
  Transmission Date: 20230721
  Serious: Yes (Hospitalization, Other)
  Sender: FDA-Public Use
  Company Number: CA-JNJFOC-20230421290

PATIENT
  Age: 17 Year
  Sex: Male
  Weight: 51 kg

DRUGS (3)
  1. REMICADE [Suspect]
     Active Substance: INFLIXIMAB
     Indication: Crohn^s disease
     Route: 042
     Dates: start: 20230327
  2. REMICADE [Suspect]
     Active Substance: INFLIXIMAB
     Route: 042
     Dates: start: 2023
  3. REMICADE [Suspect]
     Active Substance: INFLIXIMAB
     Dosage: REQUESTED REINDUCTION. PHYSICIAN IS RE-INDUCING PATIENT AT 5 MG/KG WEEKS 0,2,6 THEN EVERY 8 WEEKS. P
     Route: 042
     Dates: start: 2023

REACTIONS (4)
  - Cellulitis [Recovering/Resolving]
  - Crohn^s disease [Not Recovered/Not Resolved]
  - Respiratory tract congestion [Recovering/Resolving]
  - Cough [Recovering/Resolving]

NARRATIVE: CASE EVENT DATE: 20230101
